FAERS Safety Report 18479055 (Version 1)
Quarter: 2020Q4

REPORT INFORMATION
  Report Type: Spontaneous
  Country: US (occurrence: US)
  Receive Date: 20201109
  Receipt Date: 20201109
  Transmission Date: 20210114
  Serious: No
  Sender: FDA-Public Use
  Company Number: US-TEVA-2020-US-1846498

PATIENT
  Age: 31 Year
  Sex: Male

DRUGS (3)
  1. EMTRICITABINE W/TENOFOVIR TEVA [Suspect]
     Active Substance: EMTRICITABINE\TENOFOVIR
     Route: 065
     Dates: start: 20201029
  2. EMTRICITABINE W/TENOFOVIR TEVA [Suspect]
     Active Substance: EMTRICITABINE\TENOFOVIR
     Indication: PROPHYLAXIS AGAINST HIV INFECTION
     Route: 065
     Dates: start: 20201028, end: 20201030
  3. MODAFINIL. [Suspect]
     Active Substance: MODAFINIL
     Indication: NARCOLEPSY
     Route: 065

REACTIONS (3)
  - Depression [Recovered/Resolved]
  - Anxiety [Recovering/Resolving]
  - Crying [Recovered/Resolved]

NARRATIVE: CASE EVENT DATE: 20201028
